FAERS Safety Report 15835431 (Version 2)
Quarter: 2020Q4

REPORT INFORMATION
  Report Type: Report from Study
  Country: None (occurrence: US)
  Receive Date: 20190117
  Receipt Date: 20201231
  Transmission Date: 20210113
  Serious: Yes (Death)
  Sender: FDA-Public Use
  Company Number: US-ABBVIE-19K-163-2624787-00

PATIENT
  Age: 78 Year
  Sex: Male

DRUGS (1)
  1. VENETOCLAX. [Suspect]
     Active Substance: VENETOCLAX
     Indication: ACUTE MYELOID LEUKAEMIA
     Route: 048
     Dates: start: 20180209

REACTIONS (7)
  - Intentional product use issue [Unknown]
  - Hypertension [Unknown]
  - Anaemia [Unknown]
  - Death [Fatal]
  - Type 2 diabetes mellitus [Unknown]
  - Eczema [Unknown]
  - Coronary artery disease [Unknown]

NARRATIVE: CASE EVENT DATE: 20181228
